FAERS Safety Report 7216163-9 (Version None)
Quarter: 2011Q1

REPORT INFORMATION
  Report Type: 
  Country: None (occurrence: None)
  Receive Date: 20110105
  Receipt Date: 20110105
  Transmission Date: 20110831
  Serious: Yes (Hospitalization)
  Sender: FDA-Public Use
  Company Number: None

PATIENT
  Age: 15 Month
  Sex: Male
  Weight: 7.9 kg

DRUGS (2)
  1. KINERET [Suspect]
     Indication: CHRONIC INFANTILE NEUROLOGICAL CUTANEOUS AND ARTICULAR SYNDROME
     Dosage: 0.17ML SUBCUTANEOUS 0.24ML SUBCUTANEOUS
     Route: 058
     Dates: start: 20091214, end: 20091223
  2. KINERET [Suspect]
     Indication: CHRONIC INFANTILE NEUROLOGICAL CUTANEOUS AND ARTICULAR SYNDROME
     Dosage: 0.17ML SUBCUTANEOUS 0.24ML SUBCUTANEOUS
     Route: 058
     Dates: start: 20091223

REACTIONS (2)
  - PNEUMONIA [None]
  - SINUSITIS [None]
